FAERS Safety Report 6287942-X (Version None)
Quarter: 2009Q3

REPORT INFORMATION
  Report Type: 
  Country: None (occurrence: None)
  Receive Date: 20090729
  Receipt Date: 20090724
  Transmission Date: 20100115
  Serious: Yes (Death)
  Sender: FDA-Public Use
  Company Number: DE-BRISTOL-MYERS SQUIBB COMPANY-14714315

PATIENT
  Age: 68 Year
  Sex: Female
  Weight: 53 kg

DRUGS (8)
  1. CARBIDOPA-LEVODOPA [Suspect]
  2. CLOZAPINE [Suspect]
     Route: 048
  3. DOMPERIDONE [Suspect]
  4. OMEPRAZOLE [Suspect]
     Dosage: 1 DOSAGE FORM = 40 UNITS NOT SPECIFIED
  5. PIPAMPERONE [Suspect]
  6. RIVASTIGMINE TARTRATE [Suspect]
  7. STALEVO 100 [Suspect]
  8. VALPROIC ACID [Suspect]

REACTIONS (1)
  - SUBILEUS [None]
